FAERS Safety Report 11092273 (Version 1)
Quarter: 2015Q2

REPORT INFORMATION
  Report Type: Spontaneous
  Country: US (occurrence: US)
  Receive Date: 20150506
  Receipt Date: 20150506
  Transmission Date: 20150821
  Serious: Yes (Hospitalization, Other)
  Sender: FDA-Public Use
  Company Number: US-ROCHE-1573006

PATIENT
  Age: 68 Year
  Sex: Female

DRUGS (5)
  1. CARAFATE [Concomitant]
     Active Substance: SUCRALFATE
     Indication: ABDOMINAL DISCOMFORT
  2. BUSPAR [Concomitant]
     Active Substance: BUSPIRONE HYDROCHLORIDE
     Indication: ANXIETY
  3. PROTONIX (UNITED STATES) [Concomitant]
     Indication: ABDOMINAL DISCOMFORT
  4. LEXAPRO [Concomitant]
     Active Substance: ESCITALOPRAM OXALATE
     Indication: DEPRESSION
  5. RITUXAN [Suspect]
     Active Substance: RITUXIMAB
     Indication: RHEUMATOID ARTHRITIS
     Route: 042
     Dates: start: 201407, end: 20141218

REACTIONS (13)
  - Myocardial infarction [Recovered/Resolved]
  - Blood test abnormal [Recovered/Resolved]
  - Chest discomfort [Recovered/Resolved]
  - Pneumonia [Recovered/Resolved]
  - Discomfort [Recovered/Resolved]
  - Depression [Not Recovered/Not Resolved]
  - General physical health deterioration [Recovered/Resolved]
  - Ulcer haemorrhage [Recovered/Resolved]
  - Hallucination [Recovered/Resolved]
  - Peptic ulcer [Recovered/Resolved]
  - Anxiety [Not Recovered/Not Resolved]
  - Confusional state [Recovered/Resolved]
  - Pyrexia [Recovered/Resolved]

NARRATIVE: CASE EVENT DATE: 20141226
